FAERS Safety Report 10267341 (Version 1)
Quarter: 2014Q2

REPORT INFORMATION
  Report Type: Spontaneous
  Country: US (occurrence: None)
  Receive Date: 20140626
  Receipt Date: 20140626
  Transmission Date: 20141212
  Serious: Yes (Hospitalization, Disabling, Other)
  Sender: FDA-Public Use
  Company Number: None

PATIENT
  Age: 66 Year
  Sex: Female
  Weight: 61.24 kg

DRUGS (1)
  1. ESTRING [Suspect]
     Indication: VULVOVAGINAL PAIN
     Dosage: 2 MG/ 3 MONTHS VAGINAL
     Route: 067

REACTIONS (2)
  - Headache [None]
  - Ischaemic stroke [None]
